FAERS Safety Report 14190732 (Version 1)
Quarter: 2017Q4

REPORT INFORMATION
  Report Type: Spontaneous
  Country: US (occurrence: US)
  Receive Date: 20171114
  Receipt Date: 20171114
  Transmission Date: 20180321
  Serious: Yes (Disabling)
  Sender: FDA-Public Use
  Company Number: None

PATIENT
  Age: 49 Year
  Sex: Female
  Weight: 58.5 kg

DRUGS (3)
  1. DESONIDE. [Suspect]
     Active Substance: DESONIDE
     Indication: DERMATITIS ATOPIC
     Route: 061
     Dates: start: 20110801, end: 20170402
  2. CARBAMAZEPINE. [Concomitant]
     Active Substance: CARBAMAZEPINE
  3. LEVOTHORXINE [Concomitant]

REACTIONS (4)
  - Skin burning sensation [None]
  - Drug dependence [None]
  - Rash [None]
  - Pruritus [None]
